FAERS Safety Report 5801433-9 (Version None)
Quarter: 2008Q2

REPORT INFORMATION
  Report Type: 
  Country: None (occurrence: None)
  Receive Date: 20080626
  Receipt Date: 20070823
  Transmission Date: 20081010
  Serious: Yes (Other)
  Sender: FDA-Public Use
  Company Number: 513130

PATIENT
  Age: 51 Year
  Sex: Female

DRUGS (2)
  1. XELODA [Suspect]
     Indication: ONCOLOGIC COMPLICATION
     Dosage: 5 DOSE FORM DAILY
     Dates: start: 20070614
  2. XELODA [Suspect]
     Indication: PULMONARY OEDEMA
     Dosage: 5 DOSE FORM DAILY
     Dates: start: 20070614

REACTIONS (3)
  - BLISTER [None]
  - OEDEMA PERIPHERAL [None]
  - PHARYNGEAL ULCERATION [None]
